FAERS Safety Report 9502235 (Version 2)
Quarter: 2013Q3

REPORT INFORMATION
  Report Type: Report from Study
  Country: BA (occurrence: BA)
  Receive Date: 20130906
  Receipt Date: 20130918
  Transmission Date: 20140515
  Serious: Yes (Life-Threatening, Hospitalization, Disabling)
  Sender: FDA-Public Use
  Company Number: BA-ROCHE-1270372

PATIENT
  Age: 51 Year
  Sex: Male
  Weight: 85 kg

DRUGS (1)
  1. PEG-INTERFERON ALFA 2A [Suspect]
     Indication: CHRONIC HEPATITIS B
     Dosage: DATE OF LAST DOSE PRIOR TO EVENT: 18/MAR/2011
     Route: 058
     Dates: start: 20100421

REACTIONS (1)
  - Hepatocellular carcinoma [Not Recovered/Not Resolved]
